FAERS Safety Report 16289788 (Version 1)
Quarter: 2019Q2

REPORT INFORMATION
  Report Type: Spontaneous
  Country: US (occurrence: US)
  Receive Date: 20190403
  Receipt Date: 20190403
  Transmission Date: 20190711
  Serious: No
  Sender: FDA-Public Use
  Company Number: None

PATIENT
  Age: 63 Year
  Sex: Female

DRUGS (1)
  1. DALFAMPRIDINE  10MG ER TAB [Suspect]
     Active Substance: DALFAMPRIDINE
     Route: 048
     Dates: start: 201812

REACTIONS (3)
  - Back pain [None]
  - Drug intolerance [None]
  - Dizziness [None]

NARRATIVE: CASE EVENT DATE: 20190403
